FAERS Safety Report 21212729 (Version 1)
Quarter: 2022Q3

REPORT INFORMATION
  Report Type: Spontaneous
  Country: US (occurrence: None)
  Receive Date: 20220813
  Receipt Date: 20220813
  Transmission Date: 20221026
  Serious: Yes (Hospitalization)
  Sender: FDA-Public Use
  Company Number: None

PATIENT
  Age: 49 Year
  Sex: Female
  Weight: 67.6 kg

DRUGS (3)
  1. FLUOROURACIL [Suspect]
     Active Substance: FLUOROURACIL
     Dates: end: 20220804
  2. LEUCOVORIN CALCIUM [Suspect]
     Active Substance: LEUCOVORIN CALCIUM
     Dates: end: 20220804
  3. ELOXATIN [Suspect]
     Active Substance: OXALIPLATIN
     Dates: end: 20220804

REACTIONS (9)
  - Pleuritic pain [None]
  - Pyrexia [None]
  - Hypoxia [None]
  - Hypotension [None]
  - Tachycardia [None]
  - Pleural effusion [None]
  - Lung consolidation [None]
  - Atelectasis [None]
  - Pulmonary embolism [None]

NARRATIVE: CASE EVENT DATE: 20220804
